FAERS Safety Report 4456835-2 (Version None)
Quarter: 2004Q3

REPORT INFORMATION
  Report Type: 
  Country: None (occurrence: None)
  Receive Date: 20040923
  Receipt Date: 20040913
  Transmission Date: 20050211
  Serious: Yes (Hospitalization)
  Sender: FDA-Public Use
  Company Number: ES-AMGEN-UK091135

PATIENT
  Sex: Female
  Weight: 76 kg

DRUGS (5)
  1. NEUPOGEN [Suspect]
     Indication: NEUTROPENIA
     Route: 058
     Dates: start: 20040819, end: 20040826
  2. PACLITAXEL [Concomitant]
     Route: 042
     Dates: start: 20040820, end: 20040820
  3. NEURONTIN [Concomitant]
     Route: 048
     Dates: start: 20040802
  4. POTASSIUM [Concomitant]
     Route: 047
     Dates: start: 20040802
  5. OMEPRAZOLE [Concomitant]
     Route: 048
     Dates: start: 20040802

REACTIONS (5)
  - ARTHRALGIA [None]
  - DYSPNOEA [None]
  - DYSPNOEA PAROXYSMAL NOCTURNAL [None]
  - MYALGIA [None]
  - ORTHOPNOEA [None]
